FAERS Safety Report 8013412-4 (Version None)
Quarter: 2011Q4

REPORT INFORMATION
  Report Type: 
  Country: None (occurrence: None)
  Receive Date: 20111227
  Receipt Date: 20111227
  Transmission Date: 20120403
  Serious: Yes (Other)
  Sender: FDA-Public Use
  Company Number: None

PATIENT
  Sex: Male

DRUGS (1)
  1. FORTEO [Suspect]
     Dosage: 20MCG DAILY SUBCUTANEOUSLY
     Route: 058
     Dates: start: 20100710, end: 20111001

REACTIONS (3)
  - NEUROPATHY PERIPHERAL [None]
  - NAUSEA [None]
  - WEIGHT INCREASED [None]
